FAERS Safety Report 19250143 (Version 1)
Quarter: 2021Q2

REPORT INFORMATION
  Report Type: Spontaneous
  Country: NL (occurrence: GB)
  Receive Date: 20210512
  Receipt Date: 20210512
  Transmission Date: 20210717
  Serious: Yes (Other)
  Sender: FDA-Public Use
  Company Number: NL-TAKEDA-2021TUS029427

PATIENT
  Age: 61 Year
  Sex: Male

DRUGS (4)
  1. TIPIFARNIB [Suspect]
     Active Substance: TIPIFARNIB
     Indication: MYELODYSPLASTIC SYNDROME
  2. BORTEZOMIB. [Suspect]
     Active Substance: BORTEZOMIB
     Indication: MYELODYSPLASTIC SYNDROME
     Dosage: UNK UNK, Q4WEEKS
     Route: 065
  3. TIPIFARNIB [Suspect]
     Active Substance: TIPIFARNIB
     Indication: ACUTE MYELOID LEUKAEMIA
     Dosage: 200 MILLIGRAM, BID
     Route: 065
  4. BORTEZOMIB. [Suspect]
     Active Substance: BORTEZOMIB
     Indication: ACUTE MYELOID LEUKAEMIA

REACTIONS (1)
  - Infection [Unknown]
